FAERS Safety Report 4827596-X (Version None)
Quarter: 2005Q4

REPORT INFORMATION
  Report Type: 
  Country: None (occurrence: None)
  Receive Date: 20051114
  Receipt Date: 20051102
  Transmission Date: 20060501
  Serious: Yes (Other)
  Sender: FDA-Public Use
  Company Number: PHBS2005SE16131

PATIENT
  Age: 76 Year
  Sex: Male

DRUGS (5)
  1. ZOMETA [Suspect]
     Indication: MULTIPLE MYELOMA
     Dosage: 4 MG, QMO
     Route: 042
     Dates: start: 20020501, end: 20041101
  2. ARTHROTEC [Concomitant]
     Route: 048
  3. ALVEDON [Concomitant]
     Route: 048
  4. ALKERAN [Concomitant]
     Route: 065
  5. PREDNISOLONE [Concomitant]
     Route: 065

REACTIONS (8)
  - BONE DISORDER [None]
  - BREATH ODOUR [None]
  - OSTEONECROSIS [None]
  - SWELLING [None]
  - SWOLLEN TONGUE [None]
  - TONGUE BLISTERING [None]
  - TOOTH EXTRACTION [None]
  - WOUND TREATMENT [None]
